FAERS Safety Report 12451070 (Version 1)
Quarter: 2016Q2

REPORT INFORMATION
  Report Type: Spontaneous
  Country: US (occurrence: US)
  Receive Date: 20160609
  Receipt Date: 20160609
  Transmission Date: 20160815
  Serious: No
  Sender: FDA-Public Use
  Company Number: US-BAYER-2016-112158

PATIENT
  Age: 87 Year
  Sex: Male
  Weight: 74.83 kg

DRUGS (4)
  1. WARFARIN [Concomitant]
     Active Substance: WARFARIN
  2. CLARITIN [Suspect]
     Active Substance: LORATADINE
     Indication: SEASONAL ALLERGY
     Dosage: 1 DF, QD
     Route: 048
     Dates: start: 201605, end: 20160605
  3. LOVASTATIN. [Concomitant]
     Active Substance: LOVASTATIN
  4. COUMADIN [Concomitant]
     Active Substance: WARFARIN SODIUM

REACTIONS (4)
  - Reading disorder [Not Recovered/Not Resolved]
  - Dry eye [Not Recovered/Not Resolved]
  - Visual impairment [Not Recovered/Not Resolved]
  - Eye irritation [None]

NARRATIVE: CASE EVENT DATE: 20160605
